FAERS Safety Report 9186680 (Version 2)
Quarter: 2013Q2

REPORT INFORMATION
  Report Type: Report from Study
  Country: US (occurrence: US)
  Receive Date: 20130325
  Receipt Date: 20130405
  Transmission Date: 20140414
  Serious: Yes (Death)
  Sender: FDA-Public Use
  Company Number: US-ROCHE-1205692

PATIENT
  Age: 49 Year
  Sex: Male

DRUGS (1)
  1. XELODA [Suspect]
     Indication: COLORECTAL CANCER METASTATIC
     Route: 048
     Dates: start: 20120510, end: 201210

REACTIONS (2)
  - Death [Fatal]
  - Drug ineffective [Unknown]
